FAERS Safety Report 18747377 (Version 1)
Quarter: 2021Q1

REPORT INFORMATION
  Report Type: Spontaneous
  Country: US (occurrence: US)
  Receive Date: 20210115
  Receipt Date: 20210115
  Transmission Date: 20210419
  Serious: Yes (Other)
  Sender: FDA-Public Use
  Company Number: US-GALDERMA-US2021000775

PATIENT
  Age: 44 Year
  Sex: Female

DRUGS (2)
  1. METRONIDAZOLE (METRONIDAZOLE) [Suspect]
     Active Substance: METRONIDAZOLE
     Indication: BACTERIAL VAGINOSIS
     Route: 065
  2. TRIMETHOPRIM/SULFAMETHOXAZOLE [Concomitant]
     Active Substance: SULFAMETHOXAZOLE\TRIMETHOPRIM
     Indication: URINARY TRACT INFECTION
     Route: 065

REACTIONS (10)
  - Erythema multiforme [Recovering/Resolving]
  - Purpura [Recovering/Resolving]
  - Abdominal pain [Recovered/Resolved]
  - Henoch-Schonlein purpura [Recovering/Resolving]
  - Nephrotic syndrome [Recovering/Resolving]
  - Proteinuria [Recovering/Resolving]
  - Hypoalbuminaemia [Recovering/Resolving]
  - Generalised oedema [Recovering/Resolving]
  - Blood creatinine increased [Recovering/Resolving]
  - Intentional product use issue [Recovered/Resolved]
